FAERS Safety Report 23201663 (Version 1)
Quarter: 2023Q4

REPORT INFORMATION
  Report Type: Spontaneous
  Country: US (occurrence: None)
  Receive Date: 20231117
  Receipt Date: 20231117
  Transmission Date: 20240110
  Serious: Yes (Hospitalization)
  Sender: FDA-Public Use
  Company Number: None

PATIENT
  Age: 77 Year
  Sex: Female
  Weight: 78.75 kg

DRUGS (8)
  1. YESCARTA [Suspect]
     Active Substance: AXICABTAGENE CILOLEUCEL
     Indication: Marginal zone lymphoma
     Dosage: OTHER FREQUENCY : ONCE;?
     Route: 041
     Dates: start: 20230713, end: 20230713
  2. ACYCLOVIR [Concomitant]
     Active Substance: ACYCLOVIR
  3. ALLOPURINOL [Concomitant]
     Active Substance: ALLOPURINOL
  4. ESCITALOPRAM [Concomitant]
     Active Substance: ESCITALOPRAM OXALATE
  5. FLUCONAZOLE [Concomitant]
     Active Substance: FLUCONAZOLE
  6. LEVETIRACETAM [Concomitant]
     Active Substance: LEVETIRACETAM
  7. PANTOPRAZOLE [Concomitant]
     Active Substance: PANTOPRAZOLE
  8. PRAMIPEXOLE [Concomitant]
     Active Substance: PRAMIPEXOLE

REACTIONS (9)
  - Cytokine release syndrome [None]
  - Pruritus [None]
  - Hypoxia [None]
  - Immune effector cell-associated neurotoxicity syndrome [None]
  - Tremor [None]
  - Lethargy [None]
  - Disorientation [None]
  - Cognitive disorder [None]
  - Neurotoxicity [None]

NARRATIVE: CASE EVENT DATE: 20230714
